FAERS Safety Report 8912461 (Version 1)
Quarter: 2012Q4

REPORT INFORMATION
  Report Type: 
  Country: IN (occurrence: IN)
  Receive Date: 20121116
  Receipt Date: 20121116
  Transmission Date: 20130627
  Serious: Yes (Death)
  Sender: FDA-Public Use
  Company Number: IN-ROCHE-1154625

PATIENT
  Age: 50 Year
  Sex: Male

DRUGS (1)
  1. TENECTEPLASE [Suspect]
     Indication: CARDIOGENIC SHOCK
     Route: 042
     Dates: start: 20121106, end: 20121106

REACTIONS (1)
  - Death [Fatal]
